FAERS Safety Report 6551474-1 (Version None)
Quarter: 2010Q1

REPORT INFORMATION
  Report Type: 
  Country: None (occurrence: None)
  Receive Date: 20100126
  Receipt Date: 20100112
  Transmission Date: 20100710
  Serious: Yes (Hospitalization)
  Sender: FDA-Public Use
  Company Number: US-RB-026658-09

PATIENT
  Age: 52 Year
  Sex: Male

DRUGS (3)
  1. SUBOXONE [Suspect]
     Route: 060
     Dates: start: 20030101
  2. HYDROCHLOROTHIAZIDE [Concomitant]
     Indication: FLUID RETENTION
     Dosage: UNKNOWN DOSING DETAILS
     Route: 065
  3. HYDROCHLOROTHIAZIDE [Concomitant]
     Indication: HYPERTENSION
     Dosage: UNKNOWN DOSING DETAILS
     Route: 065

REACTIONS (8)
  - ANIMAL SCRATCH [None]
  - CELLULITIS [None]
  - DRUG WITHDRAWAL SYNDROME [None]
  - FLUID RETENTION [None]
  - OEDEMA PERIPHERAL [None]
  - SNEEZING [None]
  - SWELLING FACE [None]
  - WEIGHT INCREASED [None]
